FAERS Safety Report 17867265 (Version 1)
Quarter: 2020Q2

REPORT INFORMATION
  Report Type: Spontaneous
  Country: US (occurrence: US)
  Receive Date: 20200605
  Receipt Date: 20200605
  Transmission Date: 20200714
  Serious: No
  Sender: FDA-Public Use
  Company Number: US-BRECKENRIDGE PHARMACEUTICAL, INC.-2085508

PATIENT
  Age: 61 Year
  Sex: Female
  Weight: 77.27 kg

DRUGS (6)
  1. SYNTHROID [Concomitant]
     Active Substance: LEVOTHYROXINE SODIUM
  2. TRAMADOL. [Concomitant]
     Active Substance: TRAMADOL
  3. ALLEGRA [Concomitant]
     Active Substance: FEXOFENADINE HYDROCHLORIDE
  4. DULOXETINE. [Suspect]
     Active Substance: DULOXETINE
     Indication: DEPRESSION
     Route: 048
  5. OTC MULTIVITAMINS [Concomitant]
  6. LORAZEPAM. [Concomitant]
     Active Substance: LORAZEPAM

REACTIONS (8)
  - Tremor [None]
  - Crying [None]
  - Emotional disorder [None]
  - Nervousness [None]
  - Therapeutic product effect decreased [None]
  - Confusional state [None]
  - Tension headache [None]
  - Depressed mood [None]
